FAERS Safety Report 25463870 (Version 1)
Quarter: 2025Q2

REPORT INFORMATION
  Report Type: Spontaneous
  Country: US (occurrence: US)
  Receive Date: 20250621
  Receipt Date: 20250621
  Transmission Date: 20250717
  Serious: No
  Sender: WES PHARMA INC
  Company Number: US-WES Pharma Inc-2179113

PATIENT

DRUGS (1)
  1. ACETAMINOPHEN\HYDROCODONE BITARTRATE [Suspect]
     Active Substance: ACETAMINOPHEN\HYDROCODONE BITARTRATE
     Indication: Product used for unknown indication

REACTIONS (3)
  - Dyspepsia [Unknown]
  - Product solubility abnormal [Unknown]
  - Malabsorption [Unknown]
